FAERS Safety Report 5268973-5 (Version None)
Quarter: 2007Q1

REPORT INFORMATION
  Report Type: 
  Country: None (occurrence: None)
  Receive Date: 20061214
  Receipt Date: 20060924
  Transmission Date: 20070707
  Serious: Yes (Other)
  Sender: FDA-Public Use
  Company Number: 2006117745

PATIENT
  Age: 93 Year
  Sex: Female

DRUGS (2)
  1. XANAX [Suspect]
  2. ALEVE [Suspect]
     Indication: ARTHRITIS
     Dosage: 220 MG (AS NEEDED), ORAL
     Route: 048
     Dates: start: 20050101

REACTIONS (1)
  - HALLUCINATION [None]
